FAERS Safety Report 6266772-9 (Version None)
Quarter: 2009Q3

REPORT INFORMATION
  Report Type: 
  Country: None (occurrence: None)
  Receive Date: 20090714
  Receipt Date: 20090707
  Transmission Date: 20100115
  Serious: Yes (Hospitalization, Other)
  Sender: FDA-Public Use
  Company Number: US-ASTRAZENECA-2009UW18977

PATIENT
  Age: 65 Year
  Sex: Male

DRUGS (2)
  1. CRESTOR [Suspect]
     Route: 048
  2. IMITREX [Concomitant]

REACTIONS (2)
  - CONFUSIONAL STATE [None]
  - HEPATIC ENZYME INCREASED [None]
